FAERS Safety Report 4969437-6 (Version None)
Quarter: 2006Q2

REPORT INFORMATION
  Report Type: 
  Country: None (occurrence: None)
  Receive Date: 20060411
  Receipt Date: 20060404
  Transmission Date: 20061013
  Serious: Yes (Death)
  Sender: FDA-Public Use
  Company Number: US-BRISTOL-MYERS SQUIBB COMPANY-13336151

PATIENT
  Age: 80 Year
  Sex: Male

DRUGS (2)
  1. SINEMET CR [Suspect]
     Indication: PARKINSON'S DISEASE
     Dosage: DOSAGE: 250 MG/25 MG
     Dates: end: 20060320
  2. ZOLOFT [Concomitant]

REACTIONS (1)
  - PARKINSON'S DISEASE [None]
